FAERS Safety Report 19304769 (Version 1)
Quarter: 2021Q2

REPORT INFORMATION
  Report Type: Spontaneous
  Country: NZ (occurrence: NZ)
  Receive Date: 20210526
  Receipt Date: 20210526
  Transmission Date: 20210717
  Serious: Yes (Hospitalization, Other)
  Sender: FDA-Public Use
  Company Number: NZ-CELLTRION INC.-2021NZ007086

PATIENT

DRUGS (6)
  1. METHOTREXATE. [Suspect]
     Active Substance: METHOTREXATE
     Indication: PYODERMA GANGRENOSUM
     Dosage: 20 MGS/C/WEEK
     Dates: start: 201906, end: 202010
  2. INFLIXIMAB PFIZER (UNKNOWN) [Suspect]
     Active Substance: INFLIXIMAB
     Indication: PYODERMA GANGRENOSUM
     Dosage: 470 MG EVERY 6 WEEKS
     Route: 042
     Dates: start: 20200414, end: 202102
  3. PREDNISONE. [Concomitant]
     Active Substance: PREDNISONE
     Indication: PYODERMA GANGRENOSUM
     Dosage: UNK
     Dates: start: 201906
  4. CICLOSPORIN [Concomitant]
     Active Substance: CYCLOSPORINE
     Dosage: UNK
     Dates: start: 20210505
  5. CICLOSPORIN [Concomitant]
     Active Substance: CYCLOSPORINE
     Indication: PYODERMA GANGRENOSUM
     Dosage: UNK
     Dates: start: 201906, end: 202102
  6. DAPSONE. [Concomitant]
     Active Substance: DAPSONE
     Dosage: UNK
     Dates: start: 202008, end: 202101

REACTIONS (6)
  - Hepatic function abnormal [Unknown]
  - Chronic obstructive pulmonary disease [Unknown]
  - Sepsis [Unknown]
  - Off label use [Unknown]
  - Pulmonary embolism [Unknown]
  - Drug ineffective for unapproved indication [Unknown]

NARRATIVE: CASE EVENT DATE: 201908
